FAERS Safety Report 9429388 (Version 1)
Quarter: 2013Q3

REPORT INFORMATION
  Report Type: Report from Study
  Country: US (occurrence: US)
  Receive Date: 20130730
  Receipt Date: 20130730
  Transmission Date: 20140515
  Serious: No
  Sender: FDA-Public Use
  Company Number: US-ABBOTT-13P-163-1058437-00

PATIENT
  Sex: Female
  Weight: 63.56 kg

DRUGS (12)
  1. NIASPAN (COATED) [Suspect]
     Indication: BLOOD CHOLESTEROL ABNORMAL
     Dates: start: 2007
  2. SIMVASTIN [Concomitant]
     Indication: PRODUCT USED FOR UNKNOWN INDICATION
  3. NTG [Concomitant]
     Indication: PRODUCT USED FOR UNKNOWN INDICATION
     Dosage: SUBLINGUAL AS NEEDED
     Route: 060
  4. METOPROLOL [Concomitant]
     Indication: PRODUCT USED FOR UNKNOWN INDICATION
  5. LISINOPRIL [Concomitant]
     Indication: PRODUCT USED FOR UNKNOWN INDICATION
  6. OXYBUTYNIN [Concomitant]
     Indication: PRODUCT USED FOR UNKNOWN INDICATION
  7. NITROFURANTOIN [Concomitant]
     Indication: PRODUCT USED FOR UNKNOWN INDICATION
  8. METFORMIN [Concomitant]
     Indication: PRODUCT USED FOR UNKNOWN INDICATION
  9. ISOFORBID [Concomitant]
     Indication: PRODUCT USED FOR UNKNOWN INDICATION
  10. PLAVIX [Concomitant]
     Indication: PRODUCT USED FOR UNKNOWN INDICATION
  11. INAPROSIN [Concomitant]
     Indication: PRODUCT USED FOR UNKNOWN INDICATION
     Dosage: AS NEEDED
  12. TYLENOL [Concomitant]
     Indication: PRODUCT USED FOR UNKNOWN INDICATION
     Dosage: AS NEEDED

REACTIONS (3)
  - Back pain [Not Recovered/Not Resolved]
  - Flushing [Recovering/Resolving]
  - Pain in extremity [Not Recovered/Not Resolved]
